FAERS Safety Report 9844843 (Version 2)
Quarter: 2014Q1

REPORT INFORMATION
  Report Type: Spontaneous
  Country: US (occurrence: None)
  Receive Date: 20140122
  Receipt Date: 20140304
  Transmission Date: 20141002
  Serious: Yes (Hospitalization, Other)
  Sender: FDA-Public Use
  Company Number: 2014-US-000365

PATIENT
  Age: 88 Year
  Sex: Female
  Weight: 69.8 kg

DRUGS (33)
  1. XYREM [Suspect]
     Indication: NARCOLEPSY
     Route: 048
     Dates: start: 200412
  2. XYREM [Suspect]
     Indication: CATAPLEXY
     Route: 048
     Dates: start: 200412
  3. PRAMIPEXOLE (PRAMIPEXOLE) [Concomitant]
  4. PRAMIPEXOLE (PRAMIPEXOLE) [Concomitant]
  5. ASPIRIN (ACETYSAILCYLIC ACID) [Concomitant]
  6. TENOMIN (ATENOLOL) TABLET [Concomitant]
  7. CARDIZEM (DITLIAZEM HYDROCHLORIDE) [Concomitant]
  8. DURAGESIC (FENTANYL) [Concomitant]
  9. ADVAIR (FLUTICASONE PROPIONATE, SALMETEROL XINAFOATE) [Concomitant]
  10. LASIX (FUROSEMIDE) [Concomitant]
  11. GLYBURIDE (GILBENCLAMIDE) [Concomitant]
  12. GUAIFENESIN (GUAIFENESIN) [Concomitant]
  13. MECLIZINE HCL (MELOZINE HYDROCHLORIDE) [Concomitant]
  14. METHYPHENIDATE (METHYLPHENIDATE HYDROCHLORIDE) [Concomitant]
  15. PROVIGIL (MODAFINIL) [Concomitant]
  16. POTASSIUM CHLORIDE (POTASSIUM CHLORIDE) [Concomitant]
  17. EFFEXOR XR (VENLAFAXINE HYDROCHLORIDE) [Concomitant]
  18. LANOXIN (DIGOXIN) [Concomitant]
  19. NORCO (HYDROCODONE BITARTRATE, PARACETAMOL) TABLET [Concomitant]
  20. LISINOPRIL (LISINOPRIL) [Concomitant]
  21. TOPROL (METOPROLOL SUCCINATE) [Concomitant]
  22. TYLENOL (PARACETAMOL) [Concomitant]
  23. DULCOLAX (BISACODYL) [Concomitant]
  24. HALDOL (HALOPEIRIDOL) [Concomitant]
  25. ATIVAN (LORAZEPAM) [Concomitant]
  26. RITALIN [Concomitant]
  27. ROXANOL (MORPHINE SULFATE) [Concomitant]
  28. NEOSPORIN (BACITRACIN, NEOMYCIN SULFATE, POLYYXIN B SULFATE) [Concomitant]
  29. NITROSTAT (GLYCERYL TRINITRATE) [Concomitant]
  30. MIRALAX (MACROGOL) [Concomitant]
  31. COMPAZINE (PROCHLORPERAZINE MALEATE) [Concomitant]
  32. SENOKOT-S (DOCUSATE SODIUM, SENNA ALEXANDRINA) [Concomitant]
  33. ULTRAM (TRAMADOL HYDROCHLORIDE) [Concomitant]

REACTIONS (6)
  - Cardiac failure congestive [None]
  - Pleural effusion [None]
  - Aspiration pleural cavity [None]
  - Increased upper airway secretion [None]
  - Pneumothorax [None]
  - Chronic obstructive pulmonary disease [None]
